FAERS Safety Report 18795167 (Version 1)
Quarter: 2021Q1

REPORT INFORMATION
  Report Type: Other
  Country: None (occurrence: US)
  Receive Date: 20210127
  Receipt Date: 20210127
  Transmission Date: 20210419
  Serious: Yes (Other)
  Sender: FDA-Public Use
  Company Number: US-GUTHY-RENKER, LLC-2105915

PATIENT
  Age: 44 Year
  Sex: Female

DRUGS (1)
  1. ACTIVE RADIANCE DAY MOISTURE SPF 30 [Suspect]
     Active Substance: AVOBENZONE\OCTINOXATE\OCTISALATE\OCTOCRYLENE\OXYBENZONE
     Dates: start: 20201126, end: 20201126

REACTIONS (2)
  - Swelling face [Recovered/Resolved]
  - Eye swelling [None]
